FAERS Safety Report 5024076-6 (Version None)
Quarter: 2006Q2

REPORT INFORMATION
  Report Type: 
  Country: None (occurrence: None)
  Receive Date: 20060607
  Receipt Date: 20060524
  Transmission Date: 20061013
  Serious: Yes (Disabling, Other)
  Sender: FDA-Public Use
  Company Number: A011778

PATIENT
  Sex: Male
  Weight: 81.6475 kg

DRUGS (3)
  1. VIAGRA [Suspect]
     Indication: ERECTILE DYSFUNCTION
     Dosage: 50 MG (AS NECESSARY), ORAL
     Route: 048
     Dates: start: 19990101, end: 20000401
  2. LOSARTAN POTASSIUM [Concomitant]
  3. VITAMINS [Concomitant]

REACTIONS (6)
  - BLINDNESS TRANSIENT [None]
  - BLINDNESS UNILATERAL [None]
  - DIPLOPIA [None]
  - FLUSHING [None]
  - RETINAL VASCULAR DISORDER [None]
  - RETINAL VEIN OCCLUSION [None]
